FAERS Safety Report 8216595-6 (Version None)
Quarter: 2012Q1

REPORT INFORMATION
  Report Type: 
  Country: None (occurrence: None)
  Receive Date: 20120314
  Receipt Date: 20110729
  Transmission Date: 20120608
  Serious: Yes (Hospitalization)
  Sender: FDA-Public Use
  Company Number: CZ-024346

PATIENT
  Age: 67 Year
  Sex: 0

DRUGS (1)
  1. (CHLORAMBUCIL ) [Suspect]
     Indication: CHRONIC LYMPHOCYTIC LEUKAEMIA
     Dosage: 30 MG ORAL
     Route: 048
     Dates: start: 20110721

REACTIONS (2)
  - FEBRILE NEUTROPENIA [None]
  - FATIGUE [None]
